FAERS Safety Report 13147005 (Version 1)
Quarter: 2017Q1

REPORT INFORMATION
  Report Type: Spontaneous
  Country: US (occurrence: US)
  Receive Date: 20170125
  Receipt Date: 20170125
  Transmission Date: 20170428
  Serious: No
  Sender: FDA-Public Use
  Company Number: US-DEXPHARM-20162336

PATIENT
  Age: 26 Year
  Sex: Male
  Weight: 79.36 kg

DRUGS (2)
  1. OMEPRAZOLE DELAYED RELEASE [Suspect]
     Active Substance: OMEPRAZOLE
     Indication: GASTROOESOPHAGEAL REFLUX DISEASE
     Dosage: 20 MG, BID
     Route: 048
     Dates: start: 20161110, end: 20161124
  2. OMEPRAZOLE DELAYED RELEASE [Suspect]
     Active Substance: OMEPRAZOLE
     Indication: GASTROOESOPHAGEAL REFLUX DISEASE
     Dosage: 20 MG, QD
     Route: 048
     Dates: start: 2013, end: 2013

REACTIONS (2)
  - Oral herpes [Recovered/Resolved]
  - Abdominal pain upper [Recovered/Resolved]

NARRATIVE: CASE EVENT DATE: 2013
